FAERS Safety Report 4560309-8 (Version None)
Quarter: 2005Q1

REPORT INFORMATION
  Report Type: 
  Country: None (occurrence: None)
  Receive Date: 20050125
  Receipt Date: 20050117
  Transmission Date: 20050727
  Serious: Yes (Other)
  Sender: FDA-Public Use
  Company Number: 200510206JP

PATIENT
  Age: 533 Month
  Sex: Female

DRUGS (4)
  1. KETEK [Suspect]
     Indication: ASTHMA
     Route: 048
     Dates: start: 20041220, end: 20041221
  2. MUCODYNE [Concomitant]
     Dosage: DOSE: 6 TABLETS/DAY
     Route: 048
     Dates: start: 20041220, end: 20041221
  3. THEOLONG [Concomitant]
     Dosage: DOSE: 4 TABLETS
     Route: 048
     Dates: start: 20041220, end: 20041221
  4. CELESTAMINE TAB [Concomitant]
     Dosage: DOSE: 2 TABLETS
     Route: 048
     Dates: start: 20041220, end: 20041221

REACTIONS (2)
  - CONVULSION [None]
  - SYNCOPE [None]
